FAERS Safety Report 4906620-X (Version None)
Quarter: 2006Q1

REPORT INFORMATION
  Report Type: 
  Country: None (occurrence: None)
  Receive Date: 20060209
  Receipt Date: 20060131
  Transmission Date: 20060701
  Serious: Yes (Life-Threatening, Hospitalization)
  Sender: FDA-Public Use
  Company Number: JP-JPN-A200600437

PATIENT
  Age: 77 Year
  Sex: Female
  Weight: 38 kg

DRUGS (6)
  1. ZANTAC [Suspect]
     Dosage: 2ML PER DAY
     Route: 042
     Dates: start: 20060126, end: 20060126
  2. KN3B [Concomitant]
     Dosage: 500ML PER DAY
     Route: 042
     Dates: start: 20060126, end: 20060126
  3. PRIMPERAN INJ [Concomitant]
     Indication: VOMITING
     Dosage: 20ML PER DAY
     Route: 042
     Dates: start: 20060126, end: 20060126
  4. ISOTONIC SODIUM CHLORIDE SOLUTION [Concomitant]
     Dosage: 20ML PER DAY
     Route: 042
     Dates: start: 20060126, end: 20060126
  5. METOCLOPRAMIDE [Concomitant]
  6. PACLITAXEL [Concomitant]
     Route: 065

REACTIONS (10)
  - ABDOMINAL PAIN [None]
  - BLOOD PRESSURE DECREASED [None]
  - CARDIAC ARREST [None]
  - CARDIO-RESPIRATORY ARREST [None]
  - CREATINE PHOSPHOKINASE DECREASED [None]
  - DIZZINESS [None]
  - FEELING ABNORMAL [None]
  - LOSS OF CONSCIOUSNESS [None]
  - RESPIRATORY ARREST [None]
  - VOMITING [None]
